FAERS Safety Report 9526803 (Version 1)
Quarter: 2013Q3

REPORT INFORMATION
  Report Type: Spontaneous
  Country: IT (occurrence: IT)
  Receive Date: 20130916
  Receipt Date: 20130916
  Transmission Date: 20140515
  Serious: Yes (Hospitalization, Other)
  Sender: FDA-Public Use
  Company Number: IT-GLAXOSMITHKLINE-B0922162A

PATIENT
  Age: 22 Year
  Sex: Female

DRUGS (2)
  1. ZANTAC [Suspect]
     Indication: NAUSEA
     Route: 042
     Dates: start: 20130821
  2. LEVOPRAID [Suspect]
     Indication: NAUSEA
     Route: 042
     Dates: start: 20130821

REACTIONS (2)
  - Loss of consciousness [Recovered/Resolved]
  - Clonus [Recovered/Resolved]
